FAERS Safety Report 4611520-9 (Version None)
Quarter: 2005Q1

REPORT INFORMATION
  Report Type: 
  Country: None (occurrence: None)
  Receive Date: 20050317
  Receipt Date: 20050215
  Transmission Date: 20050727
  Serious: Yes (Life-Threatening)
  Sender: FDA-Public Use
  Company Number: JP-ROCHE-396111

PATIENT
  Age: 33 Year
  Sex: Female

DRUGS (5)
  1. TAMIFLU [Suspect]
     Indication: INFLUENZA
     Route: 048
     Dates: start: 20050210, end: 20050210
  2. FLOMOX [Suspect]
     Indication: BRONCHITIS
     Route: 048
     Dates: start: 20050210, end: 20050210
  3. ASVERIN [Concomitant]
     Route: 048
     Dates: start: 20050210, end: 20050210
  4. CALONAL [Concomitant]
     Route: 048
     Dates: start: 20050210, end: 20050210
  5. MEIACT [Concomitant]

REACTIONS (1)
  - ANAPHYLACTIC SHOCK [None]
